FAERS Safety Report 24238944 (Version 1)
Quarter: 2024Q3

REPORT INFORMATION
  Report Type: Spontaneous
  Country: US (occurrence: None)
  Receive Date: 20240821
  Receipt Date: 20240821
  Transmission Date: 20241017
  Serious: Yes (Other)
  Sender: Public
  Company Number: None

PATIENT
  Age: 5 Year
  Sex: Male
  Weight: 17.1 kg

DRUGS (5)
  1. MONTELUKAST SODIUM [Suspect]
     Active Substance: MONTELUKAST\MONTELUKAST SODIUM
     Indication: Asthma
     Dosage: FREQUENCY : DAILY;?
     Route: 048
  2. Certirizine [Concomitant]
     Dates: start: 20221007
  3. FLOVENT HFA [Concomitant]
     Active Substance: FLUTICASONE PROPIONATE
     Dates: start: 20221007
  4. FLONASE [Concomitant]
     Active Substance: FLUTICASONE PROPIONATE
     Dates: start: 20221007
  5. ALBUTEROL SULFATE [Concomitant]
     Active Substance: ALBUTEROL SULFATE
     Dates: start: 20221007

REACTIONS (5)
  - Nightmare [None]
  - Therapy cessation [None]
  - Headache [None]
  - Sleep disorder [None]
  - Affective disorder [None]

NARRATIVE: CASE EVENT DATE: 20240809
